FAERS Safety Report 6084823-1 (Version None)
Quarter: 2009Q1

REPORT INFORMATION
  Report Type: 
  Country: None (occurrence: None)
  Receive Date: 20090218
  Receipt Date: 20090204
  Transmission Date: 20090719
  Serious: Yes (Other)
  Sender: FDA-Public Use
  Company Number: 231194K09USA

PATIENT
  Age: 54 Year
  Sex: Female

DRUGS (4)
  1. REBIF [Suspect]
     Indication: MULTIPLE SCLEROSIS
     Dosage: 44 MCG, 3 IN 1 WEEKS, SUBCUTANEOUS
     Route: 058
     Dates: start: 20070501
  2. HYDROCHLOROTHIAZIDE [Concomitant]
  3. TRAMADOL HCL [Concomitant]
  4. VALIUM [Concomitant]

REACTIONS (8)
  - BACK INJURY [None]
  - CONDITION AGGRAVATED [None]
  - DIARRHOEA [None]
  - FAECAL INCONTINENCE [None]
  - FALL [None]
  - HEADACHE [None]
  - INTERVERTEBRAL DISC PROTRUSION [None]
  - NASOPHARYNGITIS [None]
